FAERS Safety Report 4494445-1 (Version None)
Quarter: 2004Q4

REPORT INFORMATION
  Report Type: 
  Country: None (occurrence: None)
  Receive Date: 20041102
  Receipt Date: 20041020
  Transmission Date: 20050328
  Serious: Yes (Congenital Anomaly)
  Sender: FDA-Public Use
  Company Number: GBS040615058

PATIENT
  Sex: Male

DRUGS (2)
  1. FLUOXETINE [Suspect]
  2. PENICILLIN V [Concomitant]

REACTIONS (2)
  - CONGENITAL ANOMALY [None]
  - DEAFNESS NEUROSENSORY [None]
